FAERS Safety Report 11116874 (Version 2)
Quarter: 2015Q2

REPORT INFORMATION
  Report Type: Report from Study
  Country: ES (occurrence: ES)
  Receive Date: 20150515
  Receipt Date: 20150521
  Transmission Date: 20150821
  Serious: Yes (Hospitalization)
  Sender: FDA-Public Use
  Company Number: ES-ABBVIE-15P-144-1390973-00

PATIENT
  Age: 39 Year
  Sex: Female

DRUGS (8)
  1. METAMIZOLE [Concomitant]
     Active Substance: METAMIZOLE
     Indication: PROCEDURAL PAIN
     Dates: start: 20141219, end: 20141220
  2. PARACETAMOL [Concomitant]
     Active Substance: ACETAMINOPHEN
     Indication: PROCEDURAL PAIN
     Dates: start: 20141219, end: 20141220
  3. HUMIRA [Suspect]
     Active Substance: ADALIMUMAB
     Route: 058
     Dates: end: 20091001
  4. TRAMADOL [Concomitant]
     Active Substance: TRAMADOL
     Indication: FISTULA
     Dates: start: 20130404
  5. TRAMADOL [Concomitant]
     Active Substance: TRAMADOL
     Indication: PAIN
  6. PREDNISONE. [Concomitant]
     Active Substance: PREDNISONE
     Indication: CROHN^S DISEASE
  7. HUMIRA [Suspect]
     Active Substance: ADALIMUMAB
     Indication: CROHN^S DISEASE
     Dosage: BASELINE
     Route: 058
     Dates: start: 20051220, end: 20051220
  8. HUMIRA [Suspect]
     Active Substance: ADALIMUMAB
     Dosage: WEEK 2
     Route: 058

REACTIONS (3)
  - Ileus paralytic [Recovered/Resolved]
  - Postoperative wound infection [Recovered/Resolved]
  - Intestinal obstruction [Recovered/Resolved]

NARRATIVE: CASE EVENT DATE: 20141220
